FAERS Safety Report 6508269-4 (Version None)
Quarter: 2009Q4

REPORT INFORMATION
  Report Type: 
  Country: None (occurrence: None)
  Receive Date: 20091221
  Receipt Date: 20090409
  Transmission Date: 20100525
  Serious: No
  Sender: FDA-Public Use
  Company Number: US-ASTRAZENECA-2008UW04765

PATIENT
  Age: 78 Year
  Sex: Female
  Weight: 63.5 kg

DRUGS (3)
  1. CRESTOR [Suspect]
     Indication: HYPERCHOLESTEROLAEMIA
     Dosage: MONDAYS, WEDNESDAYS AND FRIDAYS
     Route: 048
     Dates: start: 20080201, end: 20090403
  2. ATENOLOL [Concomitant]
  3. ASPIRIN [Concomitant]

REACTIONS (6)
  - BURNING SENSATION [None]
  - DYSGEUSIA [None]
  - GLOSSODYNIA [None]
  - MUSCULAR WEAKNESS [None]
  - MYALGIA [None]
  - ORAL PAIN [None]
